FAERS Safety Report 8849170 (Version 1)
Quarter: 2012Q4

REPORT INFORMATION
  Report Type: Spontaneous
  Country: US (occurrence: None)
  Receive Date: 20121017
  Receipt Date: 20121017
  Transmission Date: 20130627
  Serious: No
  Sender: FDA-Public Use
  Company Number: None

PATIENT
  Age: 50 Year
  Sex: Female

DRUGS (1)
  1. DOCETAXEL [Suspect]
     Route: 042
     Dates: start: 20111125, end: 20111125

REACTIONS (4)
  - Pain in extremity [None]
  - Musculoskeletal pain [None]
  - Abdominal pain [None]
  - Pain in jaw [None]
